FAERS Safety Report 5861703-5 (Version None)
Quarter: 2008Q3

REPORT INFORMATION
  Report Type: 
  Country: None (occurrence: None)
  Receive Date: 20080827
  Receipt Date: 20080624
  Transmission Date: 20090109
  Serious: No
  Sender: FDA-Public Use
  Company Number: US-ABBOTT-08P-163-0459123-00

PATIENT
  Sex: Male
  Weight: 100.79 kg

DRUGS (3)
  1. COATED PDS [Suspect]
     Indication: HIGH DENSITY LIPOPROTEIN DECREASED
     Route: 048
     Dates: start: 20080201, end: 20080624
  2. COATED PDS [Suspect]
     Route: 048
     Dates: start: 20080624
  3. NAPROXEN SODIUM [Concomitant]
     Indication: BACK PAIN
     Route: 048
     Dates: start: 20080101

REACTIONS (2)
  - HOT FLUSH [None]
  - SKIN BURNING SENSATION [None]
